FAERS Safety Report 7580312-3 (Version None)
Quarter: 2011Q2

REPORT INFORMATION
  Report Type: 
  Country: None (occurrence: None)
  Receive Date: 20110629
  Receipt Date: 20110616
  Transmission Date: 20111010
  Serious: Yes (Hospitalization)
  Sender: FDA-Public Use
  Company Number: DE-TEVA-279113ISR

PATIENT
  Age: 72 Year
  Sex: Male
  Weight: 76 kg

DRUGS (20)
  1. DEXAMETHASONE [Suspect]
     Indication: MULTIPLE MYELOMA
     Dates: start: 20091216
  2. LENALIDOMIDE [Suspect]
     Indication: MULTIPLE MYELOMA
     Route: 048
     Dates: start: 20091216
  3. FINASTERIDE [Concomitant]
     Indication: PROSTATIC ADENOMA
     Route: 048
     Dates: start: 20100618
  4. PANTOPRAZOLE [Concomitant]
     Indication: ABDOMINAL PAIN UPPER
     Route: 048
     Dates: start: 20091201
  5. AMPHOTERICIN B [Concomitant]
     Indication: PROPHYLAXIS
     Route: 048
     Dates: start: 20061216
  6. ALLOPURINOL [Concomitant]
     Indication: HYPERCALCAEMIA
     Dosage: 100 MILLIGRAM;
     Route: 048
     Dates: start: 20091001
  7. ATENOLOL [Concomitant]
     Indication: HYPERTENSION
     Dosage: 25 MILLIGRAM;
     Route: 048
     Dates: start: 20110111
  8. PIPERACILLIN AND TAZOBACTAM [Concomitant]
     Indication: PNEUMONIA
     Dosage: 40.5 GRAM;
     Route: 048
     Dates: start: 20100303, end: 20100312
  9. HYDROCHLOROTHIAZIDE [Concomitant]
     Indication: OEDEMA PERIPHERAL
     Dosage: 25 MILLIGRAM;
     Route: 049
     Dates: start: 20100614
  10. HYPERICUM PERFORATUM EXTRACT [Concomitant]
     Indication: PROPHYLAXIS
     Route: 048
     Dates: start: 20100618
  11. MORPHINE [Concomitant]
     Indication: BONE PAIN
     Route: 048
     Dates: start: 20100211
  12. ASPIRIN [Concomitant]
     Indication: THROMBOSIS PROPHYLAXIS
     Route: 048
     Dates: start: 20100315
  13. NULYTELY [Concomitant]
     Indication: CONSTIPATION PROPHYLAXIS
     Dosage: 1 DOSAGE FORMS;
     Route: 048
     Dates: start: 20100618
  14. DEXAMETHASONE [Suspect]
     Dates: start: 20110316, end: 20110402
  15. FILGRASTIM [Concomitant]
     Route: 059
     Dates: start: 20100301, end: 20100301
  16. BROMAZEPAM [Concomitant]
     Indication: AGITATION
     Dosage: 1.5-6.0MG AS NEEDED
     Route: 048
     Dates: start: 20100812
  17. LENALIDOMIDE [Suspect]
     Route: 048
     Dates: start: 20110316, end: 20110405
  18. FILGRASTIM [Concomitant]
     Indication: NEUTROPENIA
     Route: 058
     Dates: start: 20110122
  19. TERAZOSIN HCL [Concomitant]
     Indication: HYPERTENSION
     Route: 048
     Dates: start: 20040101
  20. PAMIDRONATE DISODIUM [Concomitant]
     Indication: PROPHYLAXIS
     Route: 042
     Dates: start: 20061101

REACTIONS (1)
  - PNEUMONIA PRIMARY ATYPICAL [None]
